FAERS Safety Report 14850220 (Version 2)
Quarter: 2018Q2

REPORT INFORMATION
  Report Type: Report from Study
  Country: CA (occurrence: CA)
  Receive Date: 20180505
  Receipt Date: 20180613
  Transmission Date: 20180711
  Serious: Yes (Other)
  Sender: FDA-Public Use
  Company Number: CA-ACCORD-066577

PATIENT
  Age: 37 Year
  Sex: Female

DRUGS (1)
  1. TACROLIMUS. [Suspect]
     Active Substance: TACROLIMUS
     Indication: IMMUNOSUPPRESSION
     Dosage: 5 MG BID, REDUCED TO 1MG BID, CHANGED BACK TO 5MG BID DURING PREGNANCY
     Route: 048
     Dates: start: 1999

REACTIONS (4)
  - Lymphoproliferative disorder [Unknown]
  - Stillbirth [Unknown]
  - Maternal exposure during pregnancy [Unknown]
  - Chronic kidney disease [Unknown]
